FAERS Safety Report 6881837-6 (Version None)
Quarter: 2010Q3

REPORT INFORMATION
  Report Type: 
  Country: None (occurrence: None)
  Receive Date: 20100729
  Receipt Date: 20100715
  Transmission Date: 20110219
  Serious: Yes (Death, Other)
  Sender: FDA-Public Use
  Company Number: US-WYE-H16290110

PATIENT
  Age: 88 Year
  Sex: Male
  Weight: 64 kg

DRUGS (12)
  1. TYGACIL [Suspect]
     Indication: PNEUMONIA
     Dosage: 100 MG LOADING DOSE, THEN 50 MG Q12H
     Route: 065
     Dates: start: 20100714
  2. CIPRO [Concomitant]
     Route: 065
  3. DIFLUCAN [Concomitant]
     Route: 065
  4. DIGOXIN [Concomitant]
     Dosage: UNKNOWN
     Route: 065
  5. PROCRIT [Concomitant]
     Dosage: UNKNOWN
     Route: 065
  6. LOPRESSOR [Concomitant]
     Dosage: UNKNOWN
     Route: 065
  7. MORPHINE [Concomitant]
     Dosage: UNKNOWN
     Route: 065
  8. ZOFRAN [Concomitant]
     Dosage: UNKNOWN
     Route: 065
  9. PROTONIX [Concomitant]
     Dosage: UNKNOWN
     Route: 065
  10. DILTIAZEM [Concomitant]
     Dosage: UNKNOWN
     Route: 065
  11. ZOSYN [Suspect]
     Dates: start: 20100714, end: 20100715
  12. INSULIN [Concomitant]
     Dosage: UNKNOWN
     Route: 065

REACTIONS (2)
  - DEATH [None]
  - PLATELET COUNT DECREASED [None]
